FAERS Safety Report 12527370 (Version 2)
Quarter: 2016Q3

REPORT INFORMATION
  Report Type: Spontaneous
  Country: US (occurrence: US)
  Receive Date: 20160705
  Receipt Date: 20160713
  Transmission Date: 20161109
  Serious: Yes (Other)
  Sender: FDA-Public Use
  Company Number: US-SUNOVION-2016SUN001616

PATIENT
  Age: 58 Year
  Sex: Female
  Weight: 124.26 kg

DRUGS (2)
  1. APTIOM [Suspect]
     Active Substance: ESLICARBAZEPINE ACETATE
     Indication: SEIZURE
     Dosage: 400 MG, QD
     Route: 048
     Dates: start: 20160624, end: 20160626
  2. DILANTIN [Concomitant]
     Active Substance: PHENYTOIN
     Dosage: UNK

REACTIONS (11)
  - Fatigue [Unknown]
  - Asthenia [Unknown]
  - Feeling drunk [Unknown]
  - Confusional state [Unknown]
  - Irritability [Unknown]
  - Local swelling [Not Recovered/Not Resolved]
  - Swelling face [Unknown]
  - Dysphonia [Unknown]
  - Swollen tongue [Unknown]
  - Stomatitis [Not Recovered/Not Resolved]
  - Pharyngeal oedema [Unknown]

NARRATIVE: CASE EVENT DATE: 20160624
